FAERS Safety Report 7633538-4 (Version None)
Quarter: 2011Q3

REPORT INFORMATION
  Report Type: 
  Country: None (occurrence: None)
  Receive Date: 20110725
  Receipt Date: 20110719
  Transmission Date: 20111222
  Serious: Yes (Other)
  Sender: FDA-Public Use
  Company Number: CL-PFIZER INC-2011157375

PATIENT
  Age: 33 Year
  Sex: Female

DRUGS (3)
  1. ATENOLOL [Concomitant]
     Indication: PALPITATIONS
  2. MEDROXYPROGESTERONE ACETATE [Suspect]
     Indication: CONTRACEPTION
     Dosage: UNK
     Route: 058
     Dates: start: 20110709, end: 20110709
  3. LEVOTHYROXINE SODIUM [Concomitant]

REACTIONS (9)
  - BACK PAIN [None]
  - DYSPNOEA [None]
  - CYANOSIS [None]
  - VOMITING [None]
  - DIARRHOEA [None]
  - HYPERTENSION [None]
  - SENSORY LOSS [None]
  - GAIT DISTURBANCE [None]
  - SWELLING FACE [None]
